FAERS Safety Report 20845016 (Version 2)
Quarter: 2022Q2

REPORT INFORMATION
  Report Type: Spontaneous
  Country: IT (occurrence: IT)
  Receive Date: 20220518
  Receipt Date: 20220524
  Transmission Date: 20220721
  Serious: Yes (Other)
  Sender: FDA-Public Use
  Company Number: IT-GILEAD-2022-0581914

PATIENT
  Age: 32 Year
  Sex: Female

DRUGS (1)
  1. SACITUZUMAB GOVITECAN-HZIY [Suspect]
     Active Substance: SACITUZUMAB GOVITECAN-HZIY
     Indication: Triple negative breast cancer
     Route: 065

REACTIONS (6)
  - Neutropenia [Unknown]
  - Asthenia [Unknown]
  - Extrasystoles [Unknown]
  - Extrasystoles [Unknown]
  - Diarrhoea [Unknown]
  - Mucosal inflammation [Unknown]
